FAERS Safety Report 4765164-9 (Version None)
Quarter: 2005Q3

REPORT INFORMATION
  Report Type: 
  Country: None (occurrence: None)
  Receive Date: 20050906
  Receipt Date: 20050826
  Transmission Date: 20060218
  Serious: Yes (Hospitalization)
  Sender: FDA-Public Use
  Company Number: WAES 0508USA04330

PATIENT
  Age: 64 Year
  Sex: Male
  Weight: 36.7414 kg

DRUGS (3)
  1. DECADRON [Suspect]
     Indication: OEDEMA
     Dosage: 1 MG/DAILY/PO
     Route: 048
     Dates: start: 20050728, end: 20050805
  2. CAP STUDY DRUG (UNSPECIFIED) [Suspect]
     Indication: GLIOBLASTOMA MULTIFORME
     Dosage: 250 MG/DAILY, PO
     Route: 048
     Dates: start: 20050629, end: 20050805
  3. LABETALOL HYDROCHLORIDE [Concomitant]

REACTIONS (7)
  - ASTHENIA [None]
  - CHILLS [None]
  - FATIGUE [None]
  - IMMUNE SYSTEM DISORDER [None]
  - MALAISE [None]
  - PNEUMONIA [None]
  - URINARY INCONTINENCE [None]
